FAERS Safety Report 16471056 (Version 1)
Quarter: 2019Q2

REPORT INFORMATION
  Report Type: Spontaneous
  Country: SK (occurrence: SK)
  Receive Date: 20190624
  Receipt Date: 20190624
  Transmission Date: 20190711
  Serious: Yes (Hospitalization)
  Sender: FDA-Public Use
  Company Number: SK-BAXTER-2019BAX012060

PATIENT
  Age: 39 Year
  Sex: Female

DRUGS (2)
  1. PLASMALYTE [Suspect]
     Active Substance: ELECTROLYTES NOS
     Dosage: RE-ADMINISTERED
     Route: 042
     Dates: start: 20190611, end: 20190611
  2. PLASMALYTE [Suspect]
     Active Substance: ELECTROLYTES NOS
     Indication: PREOPERATIVE CARE
     Route: 042
     Dates: start: 20190610, end: 20190610

REACTIONS (3)
  - Tachycardia [Recovered/Resolved]
  - Body temperature increased [Recovered/Resolved]
  - Chills [Recovered/Resolved]

NARRATIVE: CASE EVENT DATE: 20190610
